FAERS Safety Report 13862066 (Version 1)
Quarter: 2017Q3

REPORT INFORMATION
  Report Type: Spontaneous
  Country: US (occurrence: US)
  Receive Date: 20170812
  Receipt Date: 20170812
  Transmission Date: 20171127
  Serious: No
  Sender: FDA-Public Use
  Company Number: PHEH2017US023992

PATIENT
  Age: 66 Year
  Sex: Female

DRUGS (7)
  1. METAXALONE. [Suspect]
     Active Substance: METAXALONE
     Indication: PAIN
     Dosage: 800 MG, TID
     Route: 048
     Dates: start: 20170630, end: 20170710
  2. TURMERIC [Concomitant]
     Active Substance: HERBALS\TURMERIC
     Indication: PRODUCT USED FOR UNKNOWN INDICATION
     Dosage: 600 MG, QD
     Route: 048
     Dates: start: 201701
  3. COCONUT OIL [Concomitant]
     Active Substance: COCONUT OIL
     Indication: PRODUCT USED FOR UNKNOWN INDICATION
     Dosage: 1 DF, QD
     Route: 048
     Dates: start: 201701
  4. CALCIUM [Concomitant]
     Active Substance: CALCIUM
     Indication: BONE DISORDER
     Dosage: 1200 MG, QD
     Route: 048
     Dates: start: 201701
  5. IBUPROFEN. [Concomitant]
     Active Substance: IBUPROFEN
     Indication: PRODUCT USED FOR UNKNOWN INDICATION
     Route: 065
  6. YOUPLUS VITAMIN C [Concomitant]
     Indication: IMMUNE SYSTEM DISORDER
     Dosage: 1000 MG, QD
     Route: 048
     Dates: start: 20161231
  7. BLACK COHOSH [Concomitant]
     Active Substance: BLACK COHOSH
     Indication: HOT FLUSH
     Dosage: 50 MG, QD
     Route: 048
     Dates: start: 201701

REACTIONS (3)
  - Malaise [Recovering/Resolving]
  - Vomiting [Recovering/Resolving]
  - Nausea [Recovering/Resolving]

NARRATIVE: CASE EVENT DATE: 20170630
